FAERS Safety Report 13738633 (Version 1)
Quarter: 2017Q3

REPORT INFORMATION
  Report Type: Spontaneous
  Country: US (occurrence: US)
  Receive Date: 20170710
  Receipt Date: 20170710
  Transmission Date: 20171127
  Serious: No
  Sender: FDA-Public Use
  Company Number: US-SAOL THERAPEUTICS-2017SAO00177

PATIENT
  Age: 66 Year
  Sex: Female

DRUGS (6)
  1. BACLOFEN. [Suspect]
     Active Substance: BACLOFEN
     Indication: MULTIPLE SCLEROSIS
  2. BACLOFEN. [Suspect]
     Active Substance: BACLOFEN
     Dosage: 194.94 ?G, \DAY
     Route: 037
  3. BACLOFEN. [Suspect]
     Active Substance: BACLOFEN
     Indication: MUSCLE SPASTICITY
     Dosage: 200 ?G, \DAY
     Route: 037
  4. BACLOFEN. [Suspect]
     Active Substance: BACLOFEN
     Indication: MULTIPLE SCLEROSIS
     Dosage: 300 ?G, \DAY
     Route: 037
  5. BACLOFEN. [Suspect]
     Active Substance: BACLOFEN
     Indication: MUSCLE SPASTICITY
     Dosage: 300 ?G, \DAY
     Route: 037
     Dates: start: 2016
  6. BACLOFEN. [Suspect]
     Active Substance: BACLOFEN
     Dosage: 196 ?G, \DAY
     Route: 037

REACTIONS (5)
  - Overdose [Not Recovered/Not Resolved]
  - Device computer issue [Recovered/Resolved]
  - Lethargy [Not Recovered/Not Resolved]
  - Hypotonia [Recovering/Resolving]
  - Muscle spasticity [Unknown]

NARRATIVE: CASE EVENT DATE: 2016
